FAERS Safety Report 25499330 (Version 3)
Quarter: 2025Q4

REPORT INFORMATION
  Report Type: Spontaneous
  Country: GB (occurrence: GB)
  Receive Date: 20250701
  Receipt Date: 20251022
  Transmission Date: 20260117
  Serious: Yes (Life-Threatening, Hospitalization, Other)
  Sender: PFIZER
  Company Number: None

PATIENT
  Age: 53 Year
  Sex: Female
  Weight: 54 kg

DRUGS (4)
  1. RIMEGEPANT [Suspect]
     Active Substance: RIMEGEPANT
     Indication: Migraine
     Dosage: 75 MG, AS NEEDED
     Route: 048
     Dates: start: 20250627, end: 20250627
  2. IVABRADINE [Concomitant]
     Active Substance: IVABRADINE
     Indication: Supraventricular tachycardia
     Dosage: UNK
  3. FREMANEZUMAB [Concomitant]
     Active Substance: FREMANEZUMAB
     Indication: Migraine
     Dosage: UNK
  4. FREMANEZUMAB [Concomitant]
     Active Substance: FREMANEZUMAB
     Dosage: 225 MG

REACTIONS (1)
  - Anaphylactic reaction [Recovered/Resolved]

NARRATIVE: CASE EVENT DATE: 20250627
